FAERS Safety Report 6190760-4 (Version None)
Quarter: 2009Q2

REPORT INFORMATION
  Report Type: 
  Country: None (occurrence: None)
  Receive Date: 20090513
  Receipt Date: 20090513
  Transmission Date: 20091009
  Serious: Yes (Other)
  Sender: FDA-Public Use
  Company Number: None

PATIENT
  Age: 17 Year
  Sex: Female
  Weight: 58.9676 kg

DRUGS (1)
  1. SINGULAIR [Suspect]
     Indication: ASTHMA EXERCISE INDUCED
     Dosage: 10MG  1 DAILY AT BEDTIME PO, OFF AND ON
     Route: 048
     Dates: start: 20080815, end: 20090105

REACTIONS (9)
  - ANXIETY [None]
  - DYSPNOEA [None]
  - INSOMNIA [None]
  - PANIC DISORDER [None]
  - PHOBIA [None]
  - SENSATION OF FOREIGN BODY [None]
  - THINKING ABNORMAL [None]
  - TIC [None]
  - TREMOR [None]
